FAERS Safety Report 5453108-6 (Version None)
Quarter: 2007Q3

REPORT INFORMATION
  Report Type: 
  Country: None (occurrence: None)
  Receive Date: 20070914
  Receipt Date: 20070904
  Transmission Date: 20080115
  Serious: Yes (Other)
  Sender: FDA-Public Use
  Company Number: US-PFIZER INC-2007071206

PATIENT
  Sex: Female
  Weight: 3.28 kg

DRUGS (3)
  1. NELFINAVIR MESILATE [Suspect]
     Indication: HIV TEST POSITIVE
     Route: 065
  2. 3TC [Suspect]
  3. AZT [Suspect]

REACTIONS (1)
  - ARRHYTHMIA [None]
